FAERS Safety Report 17108572 (Version 1)
Quarter: 2019Q4

REPORT INFORMATION
  Report Type: Report from Study
  Country: None (occurrence: US)
  Receive Date: 20191204
  Receipt Date: 20191204
  Transmission Date: 20200122
  Serious: Yes (Hospitalization, Other)
  Sender: FDA-Public Use
  Company Number: US-ABBVIE-18K-163-3122033-00

PATIENT
  Sex: Male

DRUGS (9)
  1. IMBRUVICA [Suspect]
     Active Substance: IBRUTINIB
     Route: 048
     Dates: start: 20170128, end: 20180125
  2. IMBRUVICA [Suspect]
     Active Substance: IBRUTINIB
     Dosage: 280 MG, QD
     Route: 048
     Dates: start: 20190101
  3. IMBRUVICA [Suspect]
     Active Substance: IBRUTINIB
     Dosage: EVERY OTHER DAY
     Route: 048
     Dates: start: 20170117, end: 20170318
  4. IMBRUVICA [Suspect]
     Active Substance: IBRUTINIB
     Indication: CHRONIC LYMPHOCYTIC LEUKAEMIA
     Dosage: 280 MG, QD
     Route: 048
     Dates: end: 20180924
  5. IMBRUVICA [Suspect]
     Active Substance: IBRUTINIB
     Dosage: 280 MG, QD
     Route: 048
     Dates: start: 20180627
  6. IMBRUVICA [Suspect]
     Active Substance: IBRUTINIB
     Dosage: DOSAGE WAS 2 CAPSULES ALTERNATING WITH 3 CAPSULES DAILY)
     Route: 048
     Dates: start: 20180126, end: 20180426
  7. IMBRUVICA [Suspect]
     Active Substance: IBRUTINIB
     Route: 048
     Dates: start: 20170319, end: 20171027
  8. IMBRUVICA [Suspect]
     Active Substance: IBRUTINIB
     Route: 048
     Dates: start: 20160212, end: 20170116
  9. IMBRUVICA [Suspect]
     Active Substance: IBRUTINIB
     Indication: CHRONIC LYMPHOCYTIC LEUKAEMIA
     Dosage: EVERY OTHER DAY
     Route: 048
     Dates: start: 20180427, end: 20180626

REACTIONS (5)
  - Bacterial diarrhoea [Unknown]
  - Pyrexia [Unknown]
  - Lymphocyte count decreased [Not Recovered/Not Resolved]
  - Renal neoplasm [Unknown]
  - Incorrect dose administered [Unknown]
